FAERS Safety Report 16435978 (Version 1)
Quarter: 2019Q2

REPORT INFORMATION
  Report Type: Spontaneous
  Country: US (occurrence: US)
  Receive Date: 20190614
  Receipt Date: 20190614
  Transmission Date: 20190711
  Serious: No
  Sender: FDA-Public Use
  Company Number: US-JNJFOC-20170523808

PATIENT
  Age: 80 Year
  Sex: Female

DRUGS (1)
  1. CHILDRENS TYLENOL [Suspect]
     Active Substance: ACETAMINOPHEN
     Indication: BONE PAIN
     Dosage: DOSE: 2 TEASPOON, 1-3X PER DAY, USED FOR ABOUT A MONTH
     Route: 048

REACTIONS (1)
  - Product use issue [Unknown]
